FAERS Safety Report 7306850-6 (Version None)
Quarter: 2011Q1

REPORT INFORMATION
  Report Type: 
  Country: None (occurrence: None)
  Receive Date: 20110223
  Receipt Date: 20110208
  Transmission Date: 20110831
  Serious: Yes (Other)
  Sender: FDA-Public Use
  Company Number: GB-BIOGENIDEC-2010BI031439

PATIENT
  Age: 57 Year
  Sex: Female

DRUGS (2)
  1. SIMVASTATIN [Concomitant]
  2. TYSABRI [Suspect]
     Indication: MULTIPLE SCLEROSIS RELAPSE
     Route: 042
     Dates: start: 20090707

REACTIONS (1)
  - MULTIPLE SCLEROSIS [None]
